FAERS Safety Report 6385627-2 (Version None)
Quarter: 2009Q4

REPORT INFORMATION
  Report Type: 
  Country: None (occurrence: None)
  Receive Date: 20091002
  Receipt Date: 20081021
  Transmission Date: 20100525
  Serious: No
  Sender: FDA-Public Use
  Company Number: US-ASTRAZENECA-2008UW23374

PATIENT
  Sex: Female

DRUGS (5)
  1. ARIMIDEX [Suspect]
     Indication: BREAST CANCER
     Route: 048
     Dates: start: 20081016
  2. CALCIUM WITH VITAMIN D [Concomitant]
  3. MALIC ACID [Concomitant]
  4. ZINC [Concomitant]
  5. MAGNESIUM [Concomitant]

REACTIONS (5)
  - DEPRESSION [None]
  - DIZZINESS [None]
  - FIBROMYALGIA [None]
  - INSOMNIA [None]
  - MYALGIA [None]
